FAERS Safety Report 25645500 (Version 2)
Quarter: 2025Q3

REPORT INFORMATION
  Report Type: Spontaneous
  Country: EU (occurrence: EU)
  Receive Date: 20250805
  Receipt Date: 20250819
  Transmission Date: 20251020
  Serious: Yes (Disabling)
  Sender: SANDOZ
  Company Number: EU-INFARMED-F202507-957

PATIENT
  Age: 65 Year
  Sex: Male
  Weight: 91 kg

DRUGS (2)
  1. HYRIMOZ [Suspect]
     Active Substance: ADALIMUMAB-ADAZ
     Indication: Ankylosing spondylitis
     Dosage: 1 INJECTION EVERY 14 DAYS. TWO DIFFERENT  BATCHES WERE ADMINISTERED: PJ4497 AND  PF2660
     Route: 058
     Dates: start: 20250203, end: 20250717
  2. HYRIMOZ [Suspect]
     Active Substance: ADALIMUMAB-ADAZ
     Dosage: 1 INJECTION EVERY 14 DAYS. TWO DIFFERENT  BATCHES WERE ADMINISTERED: PJ4497 AND  PF2660
     Route: 058
     Dates: start: 20250203, end: 20250717

REACTIONS (2)
  - Back pain [Not Recovered/Not Resolved]
  - Product substitution issue [Not Recovered/Not Resolved]

NARRATIVE: CASE EVENT DATE: 20250203
